FAERS Safety Report 8078427-9 (Version None)
Quarter: 2012Q1

REPORT INFORMATION
  Report Type: 
  Country: None (occurrence: None)
  Receive Date: 20120123
  Receipt Date: 20120109
  Transmission Date: 20120608
  Serious: Yes (Death, Hospitalization)
  Sender: FDA-Public Use
  Company Number: UTC-013401

PATIENT
  Age: 64 Year
  Sex: Female
  Weight: 83.6 kg

DRUGS (3)
  1. DIURETICS (DIURETICS) [Concomitant]
  2. REMODULIN [Suspect]
     Indication: PULMONARY ARTERIAL HYPERTENSION
     Dosage: 63.36 UG/KG (0.044 UG/KG,1 IN 1 MIN),SUBCUTANEOUS
     Route: 058
     Dates: start: 20060828
  3. REVATIO [Concomitant]

REACTIONS (4)
  - PNEUMONIA [None]
  - CARDIAC FAILURE CONGESTIVE [None]
  - INFUSION SITE ABSCESS [None]
  - SEPSIS [None]
